FAERS Safety Report 8182361-3 (Version None)
Quarter: 2012Q1

REPORT INFORMATION
  Report Type: 
  Country: None (occurrence: None)
  Receive Date: 20120303
  Receipt Date: 20120221
  Transmission Date: 20120608
  Serious: Yes (Other)
  Sender: FDA-Public Use
  Company Number: JP-AMGEN-JPNSP2011053967

PATIENT
  Age: 47 Year
  Sex: Female
  Weight: 52 kg

DRUGS (10)
  1. ENBREL [Suspect]
     Dosage: 25 MG, 2X/WEEK
     Route: 058
     Dates: start: 20100115, end: 20100806
  2. ENBREL [Suspect]
     Indication: RHEUMATOID ARTHRITIS
     Dosage: UNK
     Route: 058
     Dates: end: 20111001
  3. LOXONIN [Concomitant]
     Dosage: 60 MG, 3X/DAY
     Route: 048
     Dates: start: 20101105
  4. ENBREL [Suspect]
     Dosage: 25 MG, 2X/WEEK
     Route: 058
     Dates: start: 20100827
  5. RHEUMATREX [Concomitant]
     Dosage: 6 MG, WEEKLY
     Route: 048
     Dates: end: 20100827
  6. ENBREL [Suspect]
     Dosage: 25 MG, UNK
     Route: 058
     Dates: start: 20111122
  7. ENBREL [Suspect]
     Dosage: 50 MG, UNK
     Route: 058
     Dates: start: 20111205
  8. RHEUMATREX [Concomitant]
     Dosage: 6 MG, 2X/WEEK
     Route: 048
     Dates: start: 20090120, end: 20100806
  9. MUCOSTA [Concomitant]
     Dosage: 100 MG, 3X/DAY
     Route: 048
     Dates: start: 20101105
  10. ENBREL [Suspect]
     Dosage: 50 MG, WEEKLY
     Route: 058
     Dates: start: 20101105, end: 20110826

REACTIONS (2)
  - COUGH [None]
  - THROMBOCYTOPENIA [None]
